FAERS Safety Report 16366264 (Version 1)
Quarter: 2019Q2

REPORT INFORMATION
  Report Type: Spontaneous
  Country: US (occurrence: US)
  Receive Date: 20190529
  Receipt Date: 20190529
  Transmission Date: 20190711
  Serious: No
  Sender: FDA-Public Use
  Company Number: US-BAYER-2019-104055

PATIENT
  Age: 36 Year
  Sex: Male

DRUGS (1)
  1. ULTRAVIST [Suspect]
     Active Substance: IOPROMIDE
     Indication: COMPUTERISED TOMOGRAM
     Dosage: 100 ML, ONCE
     Route: 042
     Dates: start: 20190524, end: 20190524

REACTIONS (3)
  - Sneezing [None]
  - Lacrimation increased [None]
  - Urticaria [None]

NARRATIVE: CASE EVENT DATE: 20190524
